FAERS Safety Report 9640152 (Version 1)
Quarter: 2013Q4

REPORT INFORMATION
  Report Type: Spontaneous
  Country: US (occurrence: US)
  Receive Date: 20131023
  Receipt Date: 20131023
  Transmission Date: 20140711
  Serious: No
  Sender: FDA-Public Use
  Company Number: US-PFIZER INC-2013299098

PATIENT
  Age: 54 Year
  Sex: Female
  Weight: 72.6 kg

DRUGS (2)
  1. AROMASIN [Suspect]
     Indication: INVASIVE LOBULAR BREAST CARCINOMA
     Dosage: 25 MG, 1X/DAY
     Dates: start: 201307, end: 20130810
  2. ARMOUR THYROID [Suspect]
     Indication: THYROID DISORDER
     Dosage: 0.5 G, UNK
     Dates: end: 20130801

REACTIONS (8)
  - Skin disorder [Recovered/Resolved]
  - Rash [Recovered/Resolved]
  - Pruritus [Recovered/Resolved]
  - Arthralgia [Recovered/Resolved]
  - Local swelling [Recovered/Resolved]
  - Oedema [Recovered/Resolved]
  - Thyroid function test abnormal [Recovered/Resolved]
  - Palpitations [Recovered/Resolved]
